FAERS Safety Report 6066361-5 (Version None)
Quarter: 2009Q1

REPORT INFORMATION
  Report Type: 
  Country: None (occurrence: None)
  Receive Date: 20090203
  Receipt Date: 20090119
  Transmission Date: 20090719
  Serious: Yes (Other)
  Sender: FDA-Public Use
  Company Number: 238965J08USA

PATIENT
  Age: 46 Year
  Sex: Female

DRUGS (3)
  1. REBIF [Suspect]
     Indication: MULTIPLE SCLEROSIS
     Dosage: 44 MCG, 3 IN 1 WEEKS, SUBCUTANEOUS
     Route: 058
     Dates: start: 20050909
  2. LEVOTHYROXINE (LEVOTHYROXINE /00068001/) [Concomitant]
  3. CENESTIN [Concomitant]

REACTIONS (9)
  - CHOLELITHIASIS [None]
  - FEELING HOT [None]
  - HYPERTENSION [None]
  - INCISION SITE COMPLICATION [None]
  - INJECTION SITE REACTION [None]
  - INSOMNIA [None]
  - NEURALGIA [None]
  - REACTION TO AZO-DYES [None]
  - URTICARIA [None]
